FAERS Safety Report 5848170-2 (Version None)
Quarter: 2008Q3

REPORT INFORMATION
  Report Type: 
  Country: None (occurrence: None)
  Receive Date: 20080818
  Receipt Date: 20080808
  Transmission Date: 20090109
  Serious: Yes (Hospitalization)
  Sender: FDA-Public Use
  Company Number: A0742954A

PATIENT
  Age: 80 Year
  Sex: Female
  Weight: 53.6 kg

DRUGS (15)
  1. AVANDIA [Suspect]
  2. DIGOXIN [Concomitant]
  3. HYDROCHLOROTHIAZIDE [Concomitant]
  4. COREG [Concomitant]
  5. ASPIRIN [Concomitant]
  6. INSULIN [Concomitant]
  7. LIPITOR [Concomitant]
  8. UNSPECIFIED MEDICATION [Concomitant]
  9. MONOPRIL [Concomitant]
  10. GLIPIZIDE [Concomitant]
  11. LISINOPRIL [Concomitant]
  12. LEVAQUIN [Concomitant]
  13. ISOSORBIDE [Concomitant]
  14. FOSINOPRIL SODIUM [Concomitant]
  15. UNSPECIFIED MEDICATION [Concomitant]

REACTIONS (26)
  - AKINESIA [None]
  - ANGINA UNSTABLE [None]
  - AORTIC VALVE CALCIFICATION [None]
  - ARTERIAL STENOSIS [None]
  - ARTERIOSCLEROSIS [None]
  - CARDIAC FAILURE CONGESTIVE [None]
  - CARDIOMEGALY [None]
  - CEREBRAL ARTERIOSCLEROSIS [None]
  - CHEST PAIN [None]
  - DIABETES MELLITUS INADEQUATE CONTROL [None]
  - DIASTOLIC DYSFUNCTION [None]
  - DYSPNOEA [None]
  - EJECTION FRACTION DECREASED [None]
  - ELECTROCARDIOGRAM ABNORMAL [None]
  - FATIGUE [None]
  - HYPOKINESIA [None]
  - HYPOLIPIDAEMIA [None]
  - MITRAL VALVE INCOMPETENCE [None]
  - MYOCARDIAL INFARCTION [None]
  - OEDEMA PERIPHERAL [None]
  - OXYGEN SATURATION DECREASED [None]
  - PAIN IN EXTREMITY [None]
  - PERICARDIAL EFFUSION [None]
  - PNEUMONIA [None]
  - TRICUSPID VALVE INCOMPETENCE [None]
  - VENTRICULAR HYPERTROPHY [None]
